FAERS Safety Report 7273244-1 (Version None)
Quarter: 2011Q1

REPORT INFORMATION
  Report Type: 
  Country: None (occurrence: None)
  Receive Date: 20110203
  Receipt Date: 20110125
  Transmission Date: 20110831
  Serious: Yes (Hospitalization, Other)
  Sender: FDA-Public Use
  Company Number: IE-ELI_LILLY_AND_COMPANY-IE201101006245

PATIENT
  Age: 27 Year
  Sex: Male

DRUGS (1)
  1. ZYPADHERA [Suspect]
     Dosage: UNK, UNKNOWN
     Route: 030

REACTIONS (1)
  - SUBCUTANEOUS ABSCESS [None]
